FAERS Safety Report 13345424 (Version 1)
Quarter: 2017Q1

REPORT INFORMATION
  Report Type: Report from Study
  Country: AU (occurrence: AU)
  Receive Date: 20170317
  Receipt Date: 20170317
  Transmission Date: 20170428
  Serious: Yes (Hospitalization)
  Sender: FDA-Public Use
  Company Number: AU-ROCHE-1905259

PATIENT

DRUGS (5)
  1. OMBITASVIR [Interacting]
     Active Substance: OMBITASVIR
     Indication: HEPATITIS C
     Route: 065
  2. RIBAVIRIN. [Suspect]
     Active Substance: RIBAVIRIN
     Indication: HEPATITIS C
     Route: 065
  3. RITONAVIR. [Interacting]
     Active Substance: RITONAVIR
     Indication: HEPATITIS C
     Route: 065
  4. DASABUVIR [Interacting]
     Active Substance: DASABUVIR
     Indication: HEPATITIS C
     Route: 065
  5. PARITAPREVIR [Interacting]
     Active Substance: PARITAPREVIR
     Indication: HEPATITIS C
     Route: 065

REACTIONS (10)
  - Hepatic failure [Unknown]
  - Anaemia [Unknown]
  - Infection [Unknown]
  - Toxicity to various agents [Unknown]
  - Fatigue [Unknown]
  - Nausea [Unknown]
  - Hyperbilirubinaemia [Unknown]
  - Dehydration [Unknown]
  - Suicidal ideation [Unknown]
  - Headache [Unknown]
